FAERS Safety Report 7950407-0 (Version None)
Quarter: 2011Q4

REPORT INFORMATION
  Report Type: 
  Country: None (occurrence: None)
  Receive Date: 20111130
  Receipt Date: 20111128
  Transmission Date: 20120403
  Serious: Yes (Other)
  Sender: FDA-Public Use
  Company Number: US-PFIZER INC-2011274767

PATIENT
  Sex: Female
  Weight: 58 kg

DRUGS (11)
  1. DILAUDID [Concomitant]
     Indication: NEURALGIA
  2. PERCOCET [Concomitant]
     Indication: SCIATICA
  3. GABAPENTIN [Concomitant]
     Indication: NEURALGIA
     Dosage: 300 MG, 2X/DAY
  4. IBUPROFEN [Concomitant]
     Indication: NEURALGIA
  5. CHANTIX [Suspect]
     Indication: SMOKING CESSATION THERAPY
     Dosage: 0.5 MG, DAILY
     Route: 048
     Dates: start: 20111020, end: 20110101
  6. IBUPROFEN [Concomitant]
     Indication: SCIATICA
     Dosage: 800 MG, 3X/DAY
     Dates: end: 20110101
  7. PERCOCET [Concomitant]
     Indication: NEURALGIA
     Dosage: 10/325 MG, 8X/DAY
     Route: 048
  8. DILAUDID [Concomitant]
     Indication: SCIATICA
     Dosage: 2 MG, 3X/DAY
     Route: 048
  9. GABAPENTIN [Concomitant]
     Indication: SCIATICA
  10. CHANTIX [Suspect]
     Dosage: UNK
     Route: 048
     Dates: start: 20110101
  11. VALIUM [Concomitant]
     Indication: MUSCLE SPASMS
     Dosage: 5 MG, AS NEEDED
     Route: 048

REACTIONS (4)
  - SURGERY [None]
  - NAUSEA [None]
  - ANGER [None]
  - BLOOD PRESSURE DECREASED [None]
